FAERS Safety Report 6840503-3 (Version None)
Quarter: 2010Q3

REPORT INFORMATION
  Report Type: 
  Country: None (occurrence: None)
  Receive Date: 20100714
  Receipt Date: 20100707
  Transmission Date: 20110219
  Serious: Yes (Hospitalization)
  Sender: FDA-Public Use
  Company Number: A0868956A

PATIENT
  Age: 75 Year
  Sex: Female

DRUGS (7)
  1. ADVAIR DISKUS 100/50 [Suspect]
     Indication: ASTHMA
     Dosage: 1PUFF TWICE PER DAY
     Route: 055
     Dates: start: 19890101
  2. NEXIUM [Concomitant]
  3. BENICAR [Concomitant]
  4. SYNTHROID [Concomitant]
  5. ZETIA [Concomitant]
  6. SINGULAIR [Concomitant]
  7. COMBIVENT [Concomitant]

REACTIONS (3)
  - BLOOD SODIUM INCREASED [None]
  - TRANSIENT ISCHAEMIC ATTACK [None]
  - VISUAL IMPAIRMENT [None]
